FAERS Safety Report 4589361-0 (Version None)
Quarter: 2005Q1

REPORT INFORMATION
  Report Type: 
  Country: None (occurrence: None)
  Receive Date: 20050216
  Receipt Date: 20050204
  Transmission Date: 20050727
  Serious: Yes (Hospitalization)
  Sender: FDA-Public Use
  Company Number: 2005-BP-01834BP

PATIENT
  Sex: Male

DRUGS (1)
  1. CATAPRES [Suspect]
     Dosage: PO
     Route: 048
     Dates: start: 19900101

REACTIONS (2)
  - HYPERTENSION [None]
  - PHARMACEUTICAL PRODUCT COMPLAINT [None]
